FAERS Safety Report 10892081 (Version 3)
Quarter: 2015Q3

REPORT INFORMATION
  Report Type: Spontaneous
  Country: JP (occurrence: JP)
  Receive Date: 20150306
  Receipt Date: 20150714
  Transmission Date: 20151125
  Serious: No
  Sender: FDA-Public Use
  Company Number: JP-PFIZER INC-2015052233

PATIENT
  Age: 70 Year
  Sex: Male

DRUGS (8)
  1. ADALAT [Suspect]
     Active Substance: NIFEDIPINE
     Dosage: 20 MG, DAILY
     Route: 048
  2. URSO [Suspect]
     Active Substance: URSODIOL
     Dosage: 300 MG, DAILY
     Route: 048
  3. OLMETEC [Suspect]
     Active Substance: OLMESARTAN MEDOXOMIL
     Dosage: 40 MG, DAILY
     Route: 048
  4. LIVACT [Suspect]
     Active Substance: AMINO ACIDS
     Dosage: 12.45 G, DAILY
     Route: 048
  5. SUNRYTHM [Suspect]
     Active Substance: PILSICAINIDE HYDROCHLORIDE
     Dosage: 150 MG, DAILY
     Route: 048
  6. ALDACTONE A [Suspect]
     Active Substance: SPIRONOLACTONE
     Indication: PULMONARY OEDEMA
     Dosage: 25 MG, DAILY
     Route: 048
     Dates: start: 20150202
  7. VASOLAN [Suspect]
     Active Substance: VERAPAMIL HYDROCHLORIDE
     Dosage: 120 MG, DAILY
     Route: 048
  8. METHYCOBAL [Suspect]
     Active Substance: METHYLCOBALAMIN
     Dosage: 1500 MG, DAILY
     Route: 048

REACTIONS (1)
  - Hyperventilation [Recovered/Resolved]

NARRATIVE: CASE EVENT DATE: 20150203
